FAERS Safety Report 6966647-3 (Version None)
Quarter: 2010Q3

REPORT INFORMATION
  Report Type: 
  Country: None (occurrence: None)
  Receive Date: 20100906
  Receipt Date: 20100831
  Transmission Date: 20110219
  Serious: No
  Sender: FDA-Public Use
  Company Number: US-BIOGENIDEC-2010BI030565

PATIENT
  Age: 55 Year
  Sex: Female

DRUGS (1)
  1. TYSABRI [Suspect]
     Indication: MULTIPLE SCLEROSIS
     Route: 042
     Dates: start: 20080121

REACTIONS (6)
  - BACK PAIN [None]
  - BONE DENSITY DECREASED [None]
  - BURNING SENSATION [None]
  - FEELING COLD [None]
  - MUSCULAR WEAKNESS [None]
  - PYREXIA [None]
